FAERS Safety Report 9194433 (Version 1)
Quarter: 2013Q1

REPORT INFORMATION
  Report Type: Spontaneous
  Country: US (occurrence: US)
  Receive Date: 20130327
  Receipt Date: 20130327
  Transmission Date: 20140127
  Serious: No
  Sender: FDA-Public Use
  Company Number: US-ALLERGAN-1204029US

PATIENT
  Age: 46 Year
  Sex: Female

DRUGS (5)
  1. LATISSE 0.03% [Suspect]
     Indication: GROWTH OF EYELASHES
     Dosage: 1 GTT, QHS
     Route: 061
     Dates: end: 20120320
  2. LATISSE 0.03% [Suspect]
     Dosage: 1 GTT, QHS
     Route: 061
     Dates: end: 20120320
  3. VISINE                             /00256502/ [Concomitant]
     Indication: DRY EYE
     Dosage: UNK
  4. VISINE                             /00256502/ [Concomitant]
     Indication: ERYTHEMA
  5. BAUSCH AND LOMB CONTACT SOLUTION [Concomitant]
     Indication: DRY EYE
     Dosage: UNK

REACTIONS (4)
  - Incorrect dose administered [Unknown]
  - Wrong technique in drug usage process [Unknown]
  - Hair growth abnormal [Not Recovered/Not Resolved]
  - Skin hyperpigmentation [Not Recovered/Not Resolved]
